FAERS Safety Report 13466396 (Version 1)
Quarter: 2017Q2

REPORT INFORMATION
  Report Type: Spontaneous
  Country: GB (occurrence: GB)
  Receive Date: 20170421
  Receipt Date: 20170421
  Transmission Date: 20170830
  Serious: Yes (Other)
  Sender: FDA-Public Use
  Company Number: GB-AMGEN-GBRSP2017037856

PATIENT
  Sex: Male

DRUGS (4)
  1. ARANESP [Suspect]
     Active Substance: DARBEPOETIN ALFA
     Indication: PRODUCT USED FOR UNKNOWN INDICATION
     Dosage: UNK
     Route: 065
  2. FOLIC ACID. [Concomitant]
     Active Substance: FOLIC ACID
     Dosage: UNK
  3. SOLIRIS [Concomitant]
     Active Substance: ECULIZUMAB
     Dosage: UNK
  4. PENICILLIN [Concomitant]
     Active Substance: PENICILLIN
     Dosage: UNK

REACTIONS (4)
  - Head injury [Recovered/Resolved]
  - Fatigue [Not Recovered/Not Resolved]
  - Gastric ulcer [Unknown]
  - Dyspnoea exertional [Not Recovered/Not Resolved]
